FAERS Safety Report 6310152-4 (Version None)
Quarter: 2009Q3

REPORT INFORMATION
  Report Type: 
  Country: None (occurrence: None)
  Receive Date: 20090811
  Receipt Date: 20080728
  Transmission Date: 20100115
  Serious: Yes (Death)
  Sender: FDA-Public Use
  Company Number: KV200800122

PATIENT
  Age: 57 Year
  Sex: Male
  Weight: 74.8 kg

DRUGS (1)
  1. MORPHINE SULFATE [Suspect]
     Indication: CANCER PAIN
     Dosage: ORAL
     Route: 048
     Dates: start: 20050201, end: 20071231

REACTIONS (1)
  - PRODUCT QUALITY ISSUE [None]
